FAERS Safety Report 4399837-7 (Version None)
Quarter: 2004Q3

REPORT INFORMATION
  Report Type: 
  Country: None (occurrence: None)
  Receive Date: 20040714
  Receipt Date: 20040625
  Transmission Date: 20050211
  Serious: Yes (Hospitalization)
  Sender: FDA-Public Use
  Company Number: EWC040639706

PATIENT
  Age: 64 Year
  Sex: Male
  Weight: 59 kg

DRUGS (4)
  1. GEMCITABINE HYDROCHLORIDE-IV (GEMCITABINE) [Suspect]
     Indication: LUNG CANCER METASTATIC
     Dosage: 1600 MG/M2/2 OTHER
     Route: 050
     Dates: start: 20040529, end: 20040605
  2. GEMCITABINE HYDROCHLORIDE-IV (GEMCITABINE) [Suspect]
     Indication: METASTASES TO BONE
     Dosage: 1600 MG/M2/2 OTHER
     Route: 050
     Dates: start: 20040529, end: 20040605
  3. GEMCITABINE HYDROCHLORIDE-IV (GEMCITABINE) [Suspect]
     Indication: METASTASES TO LIVER
     Dosage: 1600 MG/M2/2 OTHER
     Route: 050
     Dates: start: 20040529, end: 20040605
  4. CARBOPLATIN [Concomitant]

REACTIONS (2)
  - BONE MARROW DEPRESSION [None]
  - RASH ERYTHEMATOUS [None]
